FAERS Safety Report 4450955-4 (Version None)
Quarter: 2004Q3

REPORT INFORMATION
  Report Type: 
  Country: None (occurrence: None)
  Receive Date: 20040916
  Receipt Date: 20040203
  Transmission Date: 20050211
  Serious: Yes (Other)
  Sender: FDA-Public Use
  Company Number: US-BRISTOL-MYERS SQUIBB COMPANY-12494423

PATIENT
  Age: 27 Year
  Sex: Female

DRUGS (6)
  1. STADOL [Suspect]
     Indication: MIGRAINE
     Route: 045
     Dates: start: 19941021
  2. STADOL [Suspect]
     Indication: MIGRAINE
     Dosage: ROUTES: IM AND IV
     Route: 030
     Dates: start: 19930101
  3. HYDROCODONE + ACETAMINOPHEN [Concomitant]
  4. PROMETHAZINE [Concomitant]
  5. ALPRAZOLAM [Concomitant]
  6. AMITRIPTYLINE HCL [Concomitant]

REACTIONS (2)
  - DEPENDENCE [None]
  - DRUG WITHDRAWAL SYNDROME [None]
